FAERS Safety Report 9325811 (Version 1)
Quarter: 2013Q2

REPORT INFORMATION
  Report Type: Spontaneous
  Country: DK (occurrence: DK)
  Receive Date: 20130604
  Receipt Date: 20130604
  Transmission Date: 20140414
  Serious: Yes (Other)
  Sender: FDA-Public Use
  Company Number: DK-MYLANLABS-2013S1011732

PATIENT
  Age: 69 Year
  Sex: Female

DRUGS (10)
  1. TAMOXIFEN [Suspect]
     Indication: BREAST CANCER
  2. HERCEPTIN [Suspect]
     Indication: BREAST CANCER
  3. XELODA [Suspect]
     Indication: BREAST CANCER
  4. TAXOTERE [Suspect]
     Indication: BREAST CANCER
  5. EPIRUBICIN [Suspect]
     Indication: BREAST CANCER
  6. LAPATINIB [Suspect]
     Indication: BREAST CANCER
  7. TAXOL [Suspect]
     Indication: BREAST CANCER
  8. OXALIPLATIN [Suspect]
     Indication: BREAST CANCER
  9. LETROZOLE [Suspect]
     Indication: BREAST CANCER
  10. VINORELBINE [Suspect]
     Indication: BREAST CANCER

REACTIONS (3)
  - Disease progression [Unknown]
  - Metastases to liver [Unknown]
  - Metastatic neoplasm [Unknown]
